FAERS Safety Report 17839749 (Version 41)
Quarter: 2025Q3

REPORT INFORMATION
  Report Type: Report from Study
  Country: US (occurrence: US)
  Receive Date: 20200529
  Receipt Date: 20250930
  Transmission Date: 20251021
  Serious: Yes (Other)
  Sender: TAKEDA
  Company Number: US-SHIRE-US202017553

PATIENT
  Age: 60 Year
  Sex: Female
  Weight: 56 kg

DRUGS (43)
  1. HUMAN IMMUNOGLOBULIN G [Suspect]
     Active Substance: HUMAN IMMUNOGLOBULIN G
     Indication: Immunodeficiency common variable
     Dosage: 22 GRAM, Q3WEEKS
  2. EPINEPHRINE [Concomitant]
     Active Substance: EPINEPHRINE
  3. ACETAMINOPHEN [Concomitant]
     Active Substance: ACETAMINOPHEN
  4. SODIUM BICARBONATE\SODIUM CHLORIDE [Concomitant]
     Active Substance: SODIUM BICARBONATE\SODIUM CHLORIDE
  5. PEPCID AC [Concomitant]
     Active Substance: FAMOTIDINE
  6. Nac [Concomitant]
  7. NASACORT [Concomitant]
     Active Substance: TRIAMCINOLONE ACETONIDE
  8. VALTREX [Concomitant]
     Active Substance: VALACYCLOVIR HYDROCHLORIDE
  9. PROZAC [Concomitant]
     Active Substance: FLUOXETINE HYDROCHLORIDE
  10. VOLTAREN ARTHRITIS PAIN [Concomitant]
     Active Substance: DICLOFENAC SODIUM
  11. ARMOUR THYROID [Concomitant]
     Active Substance: THYROID, PORCINE
  12. SODIUM CHLORIDE [Concomitant]
     Active Substance: SODIUM CHLORIDE
  13. CLONAZEPAM [Concomitant]
     Active Substance: CLONAZEPAM
  14. LIDOCAINE [Concomitant]
     Active Substance: LIDOCAINE
  15. ALPHA LIPOIC ACID [Concomitant]
     Active Substance: .ALPHA.-LIPOIC ACID
  16. Omega [Concomitant]
  17. FLAXSEED [Concomitant]
     Active Substance: FLAX SEED
  18. MUCINEX [Concomitant]
     Active Substance: GUAIFENESIN
  19. GLUTATHIONE [Concomitant]
     Active Substance: GLUTATHIONE
  20. MUPIROCIN [Concomitant]
     Active Substance: MUPIROCIN
  21. TOPAMAX [Concomitant]
     Active Substance: TOPIRAMATE
  22. VITAMIN B [Concomitant]
     Active Substance: VITAMIN B
  23. VITAMIN D3 [Concomitant]
     Active Substance: CHOLECALCIFEROL
  24. DIPHENHYDRAMINE HYDROCHLORIDE [Concomitant]
     Active Substance: DIPHENHYDRAMINE HYDROCHLORIDE
  25. ZINC [Concomitant]
     Active Substance: ZINC
  26. SODIUM CHLORIDE [Concomitant]
     Active Substance: SODIUM CHLORIDE
  27. MAGNESIUM OXIDE [Concomitant]
     Active Substance: MAGNESIUM OXIDE
  28. TRIAMCINOLONE ACETONIDE [Concomitant]
     Active Substance: TRIAMCINOLONE ACETONIDE
  29. LYSINE [Concomitant]
     Active Substance: LYSINE
  30. HEPARIN [Concomitant]
     Active Substance: HEPARIN SODIUM
  31. Lmx [Concomitant]
  32. RHINOCORT [Concomitant]
     Active Substance: BUDESONIDE
  33. CLARITIN [Concomitant]
     Active Substance: LORATADINE
  34. CALCIUM CARBONATE [Concomitant]
     Active Substance: CALCIUM CARBONATE
  35. NATURE-THROID [Concomitant]
     Active Substance: THYROID, PORCINE
  36. POTASSIUM CHLORIDE [Concomitant]
     Active Substance: POTASSIUM CHLORIDE
  37. CALCIUM [Concomitant]
     Active Substance: CALCIUM
  38. MAGNESIUM CITRATE [Concomitant]
     Active Substance: MAGNESIUM CITRATE
  39. SUDAFED [Concomitant]
     Active Substance: PSEUDOEPHEDRINE HYDROCHLORIDE
  40. VALIUM [Concomitant]
     Active Substance: DIAZEPAM
  41. CLINDAMYCIN PHOSPHATE [Concomitant]
     Active Substance: CLINDAMYCIN PHOSPHATE
  42. HYDROXYCHLOROQUINE SULFATE [Concomitant]
     Active Substance: HYDROXYCHLOROQUINE SULFATE
  43. TRAZODONE HCL [Concomitant]
     Active Substance: TRAZODONE HYDROCHLORIDE

REACTIONS (45)
  - Haemorrhage [Unknown]
  - Infusion related reaction [Unknown]
  - Pain in jaw [Unknown]
  - Neck pain [Unknown]
  - Urinary tract infection [Unknown]
  - Dehydration [Unknown]
  - COVID-19 [Unknown]
  - Nasopharyngitis [Recovered/Resolved]
  - Seasonal allergy [Unknown]
  - Joint swelling [Unknown]
  - Respiratory tract infection [Unknown]
  - Cystitis [Unknown]
  - Viral infection [Recovered/Resolved]
  - Obstruction [Unknown]
  - Upper-airway cough syndrome [Unknown]
  - Taste disorder [Unknown]
  - Facial pain [Unknown]
  - Sinus congestion [Unknown]
  - Paranasal sinus discomfort [Unknown]
  - Oral herpes [Unknown]
  - Fungal infection [Unknown]
  - Alopecia [Unknown]
  - Nerve compression [Unknown]
  - Herpes zoster [Unknown]
  - Blood potassium decreased [Unknown]
  - Thirst [Unknown]
  - Sinusitis [Unknown]
  - Upper respiratory tract infection [Unknown]
  - Photophobia [Unknown]
  - Nasal congestion [Unknown]
  - Rhinorrhoea [Unknown]
  - Asthenia [Unknown]
  - Lymphadenopathy [Unknown]
  - Pain [Unknown]
  - Eye pain [Unknown]
  - Rash [Unknown]
  - Pain in extremity [Unknown]
  - Paraesthesia [Unknown]
  - Arthralgia [Unknown]
  - Diarrhoea [Unknown]
  - Hypotension [Unknown]
  - Dizziness [Unknown]
  - Nausea [Unknown]
  - Headache [Unknown]
  - Fatigue [Unknown]
